FAERS Safety Report 19622550 (Version 2)
Quarter: 2021Q3

REPORT INFORMATION
  Report Type: Report from Study
  Country: US (occurrence: US)
  Receive Date: 20210728
  Receipt Date: 20210802
  Transmission Date: 20211014
  Serious: Yes (Hospitalization)
  Sender: FDA-Public Use
  Company Number: US-JNJFOC-20210739885

PATIENT
  Age: 55 Year
  Sex: Male
  Weight: 76.6 kg

DRUGS (9)
  1. TYVASO [Concomitant]
     Active Substance: TREPROSTINIL
  2. TYVASO [Suspect]
     Active Substance: TREPROSTINIL
     Indication: PULMONARY ARTERIAL HYPERTENSION
     Dosage: 18?54 UG, QID?0.6 MG/ML
     Route: 065
     Dates: start: 20191024
  3. SELEXIPAG [Suspect]
     Active Substance: SELEXIPAG
     Indication: PULMONARY HYPERTENSION
     Route: 048
  4. VELETRI [Suspect]
     Active Substance: EPOPROSTENOL
     Indication: PULMONARY HYPERTENSION
     Route: 042
     Dates: start: 202107, end: 202107
  5. VELETRI [Suspect]
     Active Substance: EPOPROSTENOL
     Route: 042
     Dates: start: 202107
  6. VELETRI [Suspect]
     Active Substance: EPOPROSTENOL
     Route: 042
  7. VELETRI [Suspect]
     Active Substance: EPOPROSTENOL
     Route: 042
  8. ADCIRCA [Concomitant]
     Active Substance: TADALAFIL
     Indication: PRODUCT USED FOR UNKNOWN INDICATION
  9. COUMADIN [Concomitant]
     Active Substance: WARFARIN SODIUM
     Indication: PRODUCT USED FOR UNKNOWN INDICATION

REACTIONS (8)
  - Therapy change [Unknown]
  - Nausea [Unknown]
  - Back pain [Unknown]
  - Headache [Unknown]
  - Fatigue [Unknown]
  - Therapy cessation [Unknown]
  - Vomiting [Unknown]
  - Abdominal distension [Unknown]
